FAERS Safety Report 18483067 (Version 1)
Quarter: 2020Q4

REPORT INFORMATION
  Report Type: Spontaneous
  Country: GB (occurrence: GB)
  Receive Date: 20201110
  Receipt Date: 20201110
  Transmission Date: 20210114
  Serious: Yes (Disabling)
  Sender: FDA-Public Use
  Company Number: GB-SUN PHARMACEUTICAL INDUSTRIES LTD-2020RR-267199

PATIENT
  Age: 80 Year
  Sex: Female
  Weight: 68.9 kg

DRUGS (1)
  1. PREGABALIN. [Suspect]
     Active Substance: PREGABALIN
     Indication: ANALGESIC THERAPY
     Dosage: 200 MILLIGRAM, DAILY
     Route: 048
     Dates: start: 20191003, end: 20200920

REACTIONS (2)
  - Eye swelling [Recovering/Resolving]
  - Blindness [Recovered/Resolved with Sequelae]
